FAERS Safety Report 18310540 (Version 3)
Quarter: 2021Q1

REPORT INFORMATION
  Report Type: Other
  Country: US (occurrence: US)
  Receive Date: 20200925
  Receipt Date: 20210318
  Transmission Date: 20210419
  Serious: Yes (Death)
  Sender: FDA-Public Use
  Company Number: US-ROCHE-2663736

PATIENT
  Age: 71 Year
  Sex: Female
  Weight: 92.62 kg

DRUGS (8)
  1. ZOLOFT [Concomitant]
     Active Substance: SERTRALINE HYDROCHLORIDE
  2. SYNTHROID [Concomitant]
     Active Substance: LEVOTHYROXINE SODIUM
  3. OCREVUS [Suspect]
     Active Substance: OCRELIZUMAB
     Indication: PRIMARY PROGRESSIVE MULTIPLE SCLEROSIS
     Dosage: INFUSE 300MG Q 13 DAYS FOR 2 DOSES,ONGOING: NO
     Route: 042
     Dates: start: 20180618, end: 201807
  4. OCREVUS [Suspect]
     Active Substance: OCRELIZUMAB
     Route: 042
     Dates: start: 20200728
  5. TRAZODONE [Concomitant]
     Active Substance: TRAZODONE HYDROCHLORIDE
  6. OCREVUS [Suspect]
     Active Substance: OCRELIZUMAB
     Route: 042
     Dates: start: 20200128
  7. BACLOFEN. [Concomitant]
     Active Substance: BACLOFEN
  8. RISPERIDON [Concomitant]
     Active Substance: RISPERIDONE

REACTIONS (2)
  - COVID-19 [Fatal]
  - Depression [Unknown]

NARRATIVE: CASE EVENT DATE: 20200818
